FAERS Safety Report 10027618 (Version 1)
Quarter: 2014Q1

REPORT INFORMATION
  Report Type: Spontaneous
  Country: US (occurrence: US)
  Receive Date: 20140321
  Receipt Date: 20140321
  Transmission Date: 20141002
  Serious: No
  Sender: FDA-Public Use
  Company Number: US-009507513-1403USA002439

PATIENT
  Sex: Female

DRUGS (2)
  1. INVANZ [Suspect]
     Dosage: 1 G, QD
  2. PHENERGAN (PROMETHAZINE HYDROCHLORIDE) [Concomitant]
     Indication: PROPHYLAXIS OF NAUSEA AND VOMITING

REACTIONS (1)
  - Nausea [Unknown]
